FAERS Safety Report 10605450 (Version 1)
Quarter: 2014Q4

REPORT INFORMATION
  Report Type: Spontaneous
  Country: CH (occurrence: CH)
  Receive Date: 20141125
  Receipt Date: 20141125
  Transmission Date: 20150529
  Serious: Yes (Hospitalization, Other)
  Sender: FDA-Public Use
  Company Number: CH-009507513-1411CHE009674

PATIENT
  Age: 63 Year
  Sex: Female

DRUGS (1)
  1. TRYPTIZOL [Suspect]
     Active Substance: AMITRIPTYLINE HYDROCHLORIDE
     Dosage: 450 MG, 18 TABLETS, ONCE
     Route: 048
     Dates: start: 20121215, end: 20121215

REACTIONS (7)
  - Mydriasis [Recovered/Resolved]
  - Tachycardia [Recovered/Resolved]
  - Agitation [Recovered/Resolved]
  - Intentional overdose [Unknown]
  - Somnolence [Recovered/Resolved]
  - Atrial fibrillation [Recovered/Resolved]
  - Suicide attempt [Recovered/Resolved]

NARRATIVE: CASE EVENT DATE: 20121215
